FAERS Safety Report 16298496 (Version 2)
Quarter: 2019Q2

REPORT INFORMATION
  Report Type: Spontaneous
  Country: FR (occurrence: FR)
  Receive Date: 20190510
  Receipt Date: 20190625
  Transmission Date: 20190711
  Serious: Yes (Hospitalization)
  Sender: FDA-Public Use
  Company Number: FR-ACCORD-126460

PATIENT
  Age: 61 Year
  Sex: Male
  Weight: 61.5 kg

DRUGS (1)
  1. FLUOROURACIL. [Suspect]
     Active Substance: FLUOROURACIL
     Indication: MALIGNANT ANORECTAL NEOPLASM
     Route: 042
     Dates: start: 20190311, end: 20190314

REACTIONS (3)
  - Mucosal inflammation [Recovering/Resolving]
  - Product prescribing error [Unknown]
  - Aplasia [Recovered/Resolved]

NARRATIVE: CASE EVENT DATE: 20190311
